FAERS Safety Report 6928721-7 (Version None)
Quarter: 2010Q3

REPORT INFORMATION
  Report Type: 
  Country: None (occurrence: None)
  Receive Date: 20100817
  Receipt Date: 20100809
  Transmission Date: 20110219
  Serious: Yes (Other)
  Sender: FDA-Public Use
  Company Number: B0669821A

PATIENT
  Age: 36 Year
  Sex: Female

DRUGS (5)
  1. PAXIL [Suspect]
     Indication: PANIC DISORDER
     Dosage: 10MG PER DAY
     Route: 048
  2. PAXIL [Suspect]
     Dosage: 20MG PER DAY
     Route: 048
  3. PAXIL [Suspect]
     Dosage: 30MG PER DAY
     Route: 048
  4. PAXIL [Suspect]
     Dosage: 20MG PER DAY
     Route: 048
  5. PAXIL [Suspect]
     Dosage: 10MG PER DAY
     Route: 048
     Dates: end: 20100201

REACTIONS (19)
  - ACTIVITIES OF DAILY LIVING IMPAIRED [None]
  - BLOOD PRESSURE INCREASED [None]
  - CONVULSION [None]
  - DAYDREAMING [None]
  - DELUSION [None]
  - DEPRESSED MOOD [None]
  - DRUG WITHDRAWAL SYNDROME [None]
  - DYSSTASIA [None]
  - FEELING ABNORMAL [None]
  - HEAD DISCOMFORT [None]
  - HYPOAESTHESIA [None]
  - IMMOBILE [None]
  - INCOHERENT [None]
  - IRRITABILITY [None]
  - MENTAL IMPAIRMENT [None]
  - MOOD ALTERED [None]
  - PALPITATIONS [None]
  - PARALYSIS [None]
  - SPEECH DISORDER [None]
